FAERS Safety Report 23176606 (Version 1)
Quarter: 2023Q4

REPORT INFORMATION
  Report Type: Spontaneous
  Country: US (occurrence: US)
  Receive Date: 20231113
  Receipt Date: 20231113
  Transmission Date: 20240109
  Serious: No
  Sender: FDA-Public Use
  Company Number: US-PERRIGO-22US015136

PATIENT
  Age: 80 Year
  Sex: Male
  Weight: 97.506 kg

DRUGS (4)
  1. POLYETHYLENE GLYCOL 3350 [Suspect]
     Active Substance: POLYETHYLENE GLYCOL 3350
     Indication: Constipation
     Dosage: CAP FILLED TO 1ST GROOVE LINE, QD
     Route: 048
     Dates: start: 20221016, end: 20221115
  2. COLACE [Concomitant]
     Active Substance: DOCUSATE SODIUM
     Indication: Constipation
     Dosage: UNKNOWN, UNKNOWN
     Route: 065
     Dates: start: 2021
  3. BENEFIBER [Concomitant]
     Active Substance: STARCH, WHEAT
     Indication: Constipation
     Dosage: UNKNOWN, UNKNOWN
     Route: 065
     Dates: start: 2021
  4. CARBIDOPA\LEVODOPA [Concomitant]
     Active Substance: CARBIDOPA\LEVODOPA
     Indication: Parkinson^s disease
     Dosage: UNKNOWN, UNKNOWN
     Route: 065
     Dates: start: 2021

REACTIONS (3)
  - Drug effect less than expected [Unknown]
  - Incorrect dose administered [Unknown]
  - Incorrect product administration duration [Unknown]

NARRATIVE: CASE EVENT DATE: 20221016
